FAERS Safety Report 7686340-1 (Version None)
Quarter: 2011Q3

REPORT INFORMATION
  Report Type: 
  Country: None (occurrence: None)
  Receive Date: 20110816
  Receipt Date: 20110809
  Transmission Date: 20111222
  Serious: Yes (Other)
  Sender: FDA-Public Use
  Company Number: US-GLAXOSMITHKLINE-A0940234A

PATIENT
  Age: 88 Year
  Sex: Male

DRUGS (12)
  1. ASPIRIN [Concomitant]
  2. SYNTHROID [Concomitant]
  3. POTASSIUM [Concomitant]
  4. LUMIGAN [Concomitant]
  5. UNSPECIFIED MEDICATION [Concomitant]
  6. LASIX [Concomitant]
  7. PLAVIX [Concomitant]
  8. PROSCAR [Concomitant]
  9. ADVAIR DISKUS 100/50 [Suspect]
     Indication: EMPHYSEMA
     Dosage: 1PUFF TWICE PER DAY
     Route: 055
     Dates: end: 20110101
  10. CLONAZEPAM [Concomitant]
  11. LIPITOR [Concomitant]
  12. METAXOLONE [Concomitant]

REACTIONS (1)
  - ANGINA PECTORIS [None]
